FAERS Safety Report 13663368 (Version 1)
Quarter: 2017Q2

REPORT INFORMATION
  Report Type: Spontaneous
  Country: US (occurrence: US)
  Receive Date: 20170617
  Receipt Date: 20170617
  Transmission Date: 20170830
  Serious: Yes (Disabling)
  Sender: FDA-Public Use
  Company Number: None

PATIENT
  Age: 64 Year
  Sex: Female
  Weight: 72 kg

DRUGS (6)
  1. XOPENEX [Concomitant]
     Active Substance: LEVALBUTEROL HYDROCHLORIDE
  2. KIRKLAND SIGNATURE ALLER TEC ALLERGY [Suspect]
     Active Substance: CETIRIZINE HYDROCHLORIDE
     Indication: MULTIPLE ALLERGIES
     Dosage: ?          QUANTITY:1 TABLET(S);?
     Route: 048
  3. SINGULAIR [Concomitant]
     Active Substance: MONTELUKAST SODIUM
  4. LIPITOR [Concomitant]
     Active Substance: ATORVASTATIN CALCIUM
  5. CALCIUM + VIT D [Concomitant]
     Active Substance: CALCIUM\VITAMIN D
  6. MULTI VIT [Concomitant]

REACTIONS (7)
  - General physical health deterioration [None]
  - Fatigue [None]
  - Palpitations [None]
  - Exercise tolerance decreased [None]
  - Temperature intolerance [None]
  - Migraine [None]
  - Flushing [None]

NARRATIVE: CASE EVENT DATE: 20160801
